FAERS Safety Report 19716952 (Version 3)
Quarter: 2021Q4

REPORT INFORMATION
  Report Type: Report from Study
  Country: US (occurrence: US)
  Receive Date: 20210818
  Receipt Date: 20211122
  Transmission Date: 20220303
  Serious: Yes (Other)
  Sender: FDA-Public Use
  Company Number: NVSC2021US184011

PATIENT
  Sex: Female

DRUGS (1)
  1. ENTRESTO [Suspect]
     Active Substance: SACUBITRIL\VALSARTAN
     Indication: Product used for unknown indication
     Dosage: 1 DF, BID
     Route: 048

REACTIONS (6)
  - Loss of consciousness [Unknown]
  - Blood glucose increased [Unknown]
  - Limb discomfort [Recovered/Resolved]
  - Hypotension [Unknown]
  - Dizziness [Unknown]
  - Drug ineffective [Unknown]
